FAERS Safety Report 11980560 (Version 1)
Quarter: 2016Q1

REPORT INFORMATION
  Report Type: Report from Study
  Country: IT (occurrence: IT)
  Receive Date: 20160129
  Receipt Date: 20160129
  Transmission Date: 20160526
  Serious: Yes (Hospitalization, Other)
  Sender: FDA-Public Use
  Company Number: IT-PFIZER INC-2016044907

PATIENT
  Age: 46 Year
  Sex: Female

DRUGS (4)
  1. SERTRALINE HCL [Suspect]
     Active Substance: SERTRALINE HYDROCHLORIDE
     Indication: WEIGHT DECREASED
     Dosage: UNK
  2. BUSPIRONE [Suspect]
     Active Substance: BUSPIRONE HYDROCHLORIDE
     Indication: WEIGHT DECREASED
     Dosage: UNK
  3. PROZAC [Suspect]
     Active Substance: FLUOXETINE HYDROCHLORIDE
     Indication: WEIGHT DECREASED
     Dosage: UNK
  4. SIBUTRAMINE HYDROCHLORIDE [Suspect]
     Active Substance: SIBUTRAMINE HYDROCHLORIDE
     Indication: WEIGHT DECREASED
     Dosage: UNK

REACTIONS (2)
  - Product use issue [Recovered/Resolved]
  - Anticholinergic syndrome [Recovered/Resolved]
